FAERS Safety Report 13089675 (Version 1)
Quarter: 2016Q4

REPORT INFORMATION
  Report Type: Spontaneous
  Country: US (occurrence: US)
  Receive Date: 20161230
  Receipt Date: 20161230
  Transmission Date: 20170207
  Serious: No
  Sender: FDA-Public Use
  Company Number: None

PATIENT
  Age: 75 Year
  Sex: Female

DRUGS (1)
  1. PROCRIT [Suspect]
     Active Substance: ERYTHROPOIETIN
     Indication: ANAEMIA
     Dosage: 12000 UNITS Q2W SQ
     Route: 058
     Dates: start: 20160718

REACTIONS (2)
  - Drug ineffective [None]
  - Fatigue [None]

NARRATIVE: CASE EVENT DATE: 20161229
